FAERS Safety Report 8368945-8 (Version None)
Quarter: 2012Q2

REPORT INFORMATION
  Report Type: 
  Country: None (occurrence: None)
  Receive Date: 20120516
  Receipt Date: 20120502
  Transmission Date: 20120825
  Serious: Yes (Other)
  Sender: FDA-Public Use
  Company Number: 2012MA005981

PATIENT
  Age: 63 Year
  Sex: Female

DRUGS (4)
  1. ONDANSETRON [Concomitant]
  2. GEMCITABINE HYDROCHLORIDE [Suspect]
     Indication: BREAST CANCER METASTATIC
     Dosage: 1600 MG, Q3W, IV
     Route: 042
     Dates: start: 20120106
  3. CARBOPLATIN [Concomitant]
  4. DEXAMETHASONE [Concomitant]

REACTIONS (3)
  - FEELING DRUNK [None]
  - ANXIETY [None]
  - BALANCE DISORDER [None]
